FAERS Safety Report 11894500 (Version 1)
Quarter: 2016Q1

REPORT INFORMATION
  Report Type: Spontaneous
  Country: US (occurrence: US)
  Receive Date: 20160107
  Receipt Date: 20160107
  Transmission Date: 20160526
  Serious: No
  Sender: FDA-Public Use
  Company Number: US-BAYER-2016-002721

PATIENT
  Age: 48 Year
  Sex: Female
  Weight: 90.7 kg

DRUGS (4)
  1. LISINOPRIL. [Concomitant]
     Active Substance: LISINOPRIL
  2. OXYTROL FOR WOMEN [Suspect]
     Active Substance: OXYBUTYNIN
     Indication: HYPERTONIC BLADDER
     Dosage: EVERY 3 DAYS
     Route: 061
     Dates: start: 201510
  3. OXYTROL FOR WOMEN [Suspect]
     Active Substance: OXYBUTYNIN
     Indication: HYPERTONIC BLADDER
     Dosage: 1 DF, QOD
     Route: 061
     Dates: start: 201510
  4. PROGESTERONE. [Concomitant]
     Active Substance: PROGESTERONE

REACTIONS (6)
  - Skin abrasion [Not Recovered/Not Resolved]
  - Expired product administered [None]
  - Application site discolouration [Not Recovered/Not Resolved]
  - Application site erythema [Not Recovered/Not Resolved]
  - Application site discolouration [Not Recovered/Not Resolved]
  - Product use issue [None]

NARRATIVE: CASE EVENT DATE: 2015
